FAERS Safety Report 12648484 (Version 1)
Quarter: 2016Q3

REPORT INFORMATION
  Report Type: Spontaneous
  Country: GB (occurrence: GB)
  Receive Date: 20160812
  Receipt Date: 20160812
  Transmission Date: 20161109
  Serious: Yes (Other)
  Sender: FDA-Public Use
  Company Number: GB-AMGEN-GBRSP2016102908

PATIENT
  Age: 45 Year
  Sex: Female

DRUGS (1)
  1. ENBREL [Suspect]
     Active Substance: ETANERCEPT
     Indication: PRODUCT USED FOR UNKNOWN INDICATION
     Dosage: 50 MG, WEEKLY
     Route: 058

REACTIONS (7)
  - Eye swelling [Unknown]
  - Lower respiratory tract infection [Unknown]
  - Swelling face [Unknown]
  - Injection site pain [Unknown]
  - Pruritus [Unknown]
  - Drug hypersensitivity [Unknown]
  - Wheezing [Unknown]

NARRATIVE: CASE EVENT DATE: 20160801
